FAERS Safety Report 8720827 (Version 6)
Quarter: 2013Q1

REPORT INFORMATION
  Report Type: Spontaneous
  Country: US (occurrence: US)
  Receive Date: 20120813
  Receipt Date: 20130329
  Transmission Date: 20140127
  Serious: Yes (Hospitalization, Disabling, Other)
  Sender: FDA-Public Use
  Company Number: US-009507513-1208USA002057

PATIENT
  Sex: Female
  Weight: 73.16 kg

DRUGS (8)
  1. FOSAMAX [Suspect]
     Indication: OSTEOPOROSIS
     Dosage: 10 MG, UNK
     Route: 048
     Dates: start: 1996, end: 200009
  2. FOSAMAX [Suspect]
     Indication: OSTEOPENIA
     Dosage: 70 MG, QW
     Route: 048
     Dates: start: 200010, end: 20100830
  3. FOSAMAX [Suspect]
     Indication: OSTEOPOROSIS
     Dosage: 70 MG, UNK
     Route: 048
     Dates: start: 200804, end: 201010
  4. FOSAMAX [Suspect]
     Indication: OSTEOPENIA
  5. ALENDRONATE SODIUM [Suspect]
     Dosage: 70 MG, UNK
     Route: 048
  6. CALTRATE WITH VITAMIN D [Concomitant]
     Dosage: UNK, QD/400MG VIT D
     Dates: start: 1996
  7. CENTRUM (MINERALS (UNSPECIFIED) (+) VITAMINS (UNSPECIFIED)) [Concomitant]
     Dosage: UNK, QD
     Dates: start: 1996
  8. TOPAMAX [Concomitant]
     Indication: MIGRAINE
     Dosage: 100 MG, BID

REACTIONS (37)
  - Intramedullary rod insertion [Unknown]
  - Intramedullary rod insertion [Unknown]
  - Spinal fusion surgery [Unknown]
  - Blindness [Unknown]
  - Glaucoma [Unknown]
  - Eye operation [Unknown]
  - Deafness [Unknown]
  - Colonoscopy [Unknown]
  - Appendicectomy [Unknown]
  - Urinary tract infection [Unknown]
  - Hypokalaemia [Unknown]
  - Anaemia [Unknown]
  - Femur fracture [Unknown]
  - Femur fracture [Unknown]
  - Hypophosphataemia [Unknown]
  - Low turnover osteopathy [Unknown]
  - Blood cholesterol increased [Unknown]
  - Adverse event [Unknown]
  - Foreign body in eye [Unknown]
  - Asthma [Unknown]
  - Type 2 diabetes mellitus [Unknown]
  - Pain [Unknown]
  - Cataract [Unknown]
  - Sinusitis [Unknown]
  - Myofascial pain syndrome [Unknown]
  - Spondylolisthesis [Unknown]
  - Intervertebral disc degeneration [Unknown]
  - Neuralgia [Unknown]
  - Depression [Unknown]
  - Hypothyroidism [Unknown]
  - Hypovitaminosis [Unknown]
  - Hypercalcaemia [Unknown]
  - Nephrolithiasis [Unknown]
  - Electrolyte imbalance [Unknown]
  - Impaired fasting glucose [Unknown]
  - Limb discomfort [Unknown]
  - Back pain [Unknown]
